FAERS Safety Report 9850320 (Version 2)
Quarter: 2014Q3

REPORT INFORMATION
  Report Type: Report from Study
  Country: US (occurrence: US)
  Receive Date: 20140128
  Receipt Date: 20140829
  Transmission Date: 20150326
  Serious: Yes (Other)
  Sender: FDA-Public Use
  Company Number: US-US-EMD SERONO, INC.-7264818

PATIENT
  Sex: Female

DRUGS (2)
  1. REBIF [Suspect]
     Active Substance: INTERFERON BETA-1A
     Route: 058
     Dates: start: 20100208
  2. REBIF [Suspect]
     Active Substance: INTERFERON BETA-1A
     Indication: PRODUCT USED FOR UNKNOWN INDICATION
     Route: 058
     Dates: start: 1999, end: 2001

REACTIONS (3)
  - Dysstasia [Not Recovered/Not Resolved]
  - Sarcoidosis [Recovering/Resolving]
  - Pulmonary fibrosis [Unknown]

NARRATIVE: CASE EVENT DATE: 2000
